FAERS Safety Report 12491686 (Version 1)
Quarter: 2016Q2

REPORT INFORMATION
  Report Type: Spontaneous
  Country: US (occurrence: None)
  Receive Date: 20160622
  Receipt Date: 20160622
  Transmission Date: 20160815
  Serious: Yes (Hospitalization, Disabling)
  Sender: FDA-Public Use
  Company Number: None

PATIENT
  Age: 24 Year
  Sex: Male
  Weight: 74.84 kg

DRUGS (5)
  1. PUMPKIN SEED OIL [Concomitant]
  2. LATUDA [Concomitant]
     Active Substance: LURASIDONE HYDROCHLORIDE
  3. ZOLOFT [Concomitant]
     Active Substance: SERTRALINE HYDROCHLORIDE
  4. FLAXSEED [Concomitant]
     Active Substance: FLAX SEED
  5. ZIPRASIDONE. [Suspect]
     Active Substance: ZIPRASIDONE
     Indication: AUTISM
     Route: 048
     Dates: start: 20151109, end: 20160420

REACTIONS (3)
  - Brain injury [None]
  - Delirium [None]
  - Communication disorder [None]

NARRATIVE: CASE EVENT DATE: 20160321
